FAERS Safety Report 18559022 (Version 4)
Quarter: 2022Q2

REPORT INFORMATION
  Report Type: Spontaneous
  Country: US (occurrence: US)
  Receive Date: 20201130
  Receipt Date: 20220412
  Transmission Date: 20220720
  Serious: Yes (Other)
  Sender: FDA-Public Use
  Company Number: US-GILEAD-2020-0505956

PATIENT
  Sex: Male
  Weight: 70.295 kg

DRUGS (26)
  1. VIREAD [Suspect]
     Active Substance: TENOFOVIR DISOPROXIL FUMARATE
     Indication: HIV infection
     Dosage: UNK
     Route: 048
     Dates: start: 20150423, end: 20150814
  2. VIREAD [Suspect]
     Active Substance: TENOFOVIR DISOPROXIL FUMARATE
     Dosage: UNK
     Route: 048
     Dates: start: 2015
  3. VIREAD [Suspect]
     Active Substance: TENOFOVIR DISOPROXIL FUMARATE
     Dosage: UNK
     Route: 048
     Dates: start: 200209, end: 201507
  4. VIREAD [Suspect]
     Active Substance: TENOFOVIR DISOPROXIL FUMARATE
     Dosage: UNK
     Route: 048
     Dates: start: 2015
  5. VIREAD [Suspect]
     Active Substance: TENOFOVIR DISOPROXIL FUMARATE
     Dosage: UNK
     Route: 065
     Dates: start: 201704, end: 201708
  6. TRUVADA [Suspect]
     Active Substance: EMTRICITABINE\TENOFOVIR DISOPROXIL FUMARATE
     Indication: HIV infection
     Dosage: UNK
     Route: 048
     Dates: start: 20080306, end: 20150515
  7. TRUVADA [Suspect]
     Active Substance: EMTRICITABINE\TENOFOVIR DISOPROXIL FUMARATE
     Dosage: UNK
     Route: 048
     Dates: start: 2009, end: 2013
  8. TRUVADA [Suspect]
     Active Substance: EMTRICITABINE\TENOFOVIR DISOPROXIL FUMARATE
     Dosage: UNK
     Route: 048
     Dates: start: 2004, end: 2015
  9. TRUVADA [Suspect]
     Active Substance: EMTRICITABINE\TENOFOVIR DISOPROXIL FUMARATE
     Dosage: UNK
     Route: 065
     Dates: start: 201003, end: 201705
  10. VITAMIN D NOS [Concomitant]
     Active Substance: VITAMIN D NOS
  11. LIPITOR [Concomitant]
     Active Substance: ATORVASTATIN CALCIUM
  12. ACETAMINOPHEN [Concomitant]
     Active Substance: ACETAMINOPHEN
  13. ACYCLOVIR [Concomitant]
     Active Substance: ACYCLOVIR
  14. AMOXICILLIN [Concomitant]
     Active Substance: AMOXICILLIN
  15. COZAAR [Concomitant]
     Active Substance: LOSARTAN POTASSIUM
  16. ATORVASTATIN [Concomitant]
     Active Substance: ATORVASTATIN
  17. HYDROCORTISONE [Concomitant]
     Active Substance: HYDROCORTISONE
  18. ROSUVASTATIN CALCIUM [Concomitant]
     Active Substance: ROSUVASTATIN CALCIUM
  19. DEXAMETHASONE [Concomitant]
     Active Substance: DEXAMETHASONE
  20. LITHIUM [Concomitant]
     Active Substance: LITHIUM
  21. LEXIVA [Concomitant]
     Active Substance: FOSAMPRENAVIR CALCIUM
  22. NORVIR [Concomitant]
     Active Substance: RITONAVIR
  23. PREZISTA [Concomitant]
     Active Substance: DARUNAVIR ETHANOLATE
  24. ASPIRIN [Concomitant]
     Active Substance: ASPIRIN
  25. TOBRAMYCIN AND DEXAMETHASONE [Concomitant]
     Active Substance: DEXAMETHASONE\TOBRAMYCIN
  26. TESTOSTERONE [Concomitant]
     Active Substance: TESTOSTERONE

REACTIONS (14)
  - Osteonecrosis [Not Recovered/Not Resolved]
  - Renal injury [Unknown]
  - Multiple fractures [Unknown]
  - Bone loss [Unknown]
  - Bone density decreased [Not Recovered/Not Resolved]
  - Tooth loss [Not Recovered/Not Resolved]
  - Skeletal injury [Unknown]
  - Arthralgia [Unknown]
  - Gingival disorder [Unknown]
  - Tooth injury [Unknown]
  - Pain [Not Recovered/Not Resolved]
  - Emotional distress [Not Recovered/Not Resolved]
  - Depression [Not Recovered/Not Resolved]
  - Blood creatinine increased [Not Recovered/Not Resolved]

NARRATIVE: CASE EVENT DATE: 20130101
